FAERS Safety Report 24841717 (Version 1)
Quarter: 2025Q1

REPORT INFORMATION
  Report Type: Spontaneous
  Country: US (occurrence: US)
  Receive Date: 20250114
  Receipt Date: 20250114
  Transmission Date: 20250409
  Serious: Yes (Other)
  Sender: BOEHRINGER INGELHEIM
  Company Number: US-Komodo Health-a23aa0000058KUvAAM

PATIENT
  Sex: Male

DRUGS (3)
  1. SPEVIGO [Suspect]
     Active Substance: SPESOLIMAB-SBZO
     Indication: Generalised pustular psoriasis
  2. PREDNISONE [Concomitant]
     Active Substance: PREDNISONE
     Indication: Product used for unknown indication
  3. METHOTREXATE [Concomitant]
     Active Substance: METHOTREXATE
     Indication: Product used for unknown indication

REACTIONS (1)
  - Generalised pustular psoriasis [Not Recovered/Not Resolved]
